FAERS Safety Report 5373759-7 (Version None)
Quarter: 2007Q2

REPORT INFORMATION
  Report Type: 
  Country: None (occurrence: None)
  Receive Date: 20070615
  Receipt Date: 20061019
  Transmission Date: 20071010
  Serious: Yes (Hospitalization, Other)
  Sender: FDA-Public Use
  Company Number: 200520561US

PATIENT
  Age: 79 Year
  Sex: Male
  Weight: 77.27 kg

DRUGS (14)
  1. LANTUS [Suspect]
     Indication: DIABETES MELLITUS NON-INSULIN-DEPENDENT
     Dosage: 16 IU/DAY SC
     Route: 058
     Dates: start: 20051213
  2. LANTUS [Suspect]
     Indication: DIABETES MELLITUS NON-INSULIN-DEPENDENT
     Dosage: 24 IU/DAY SC
     Route: 058
     Dates: start: 20051201
  3. LANTUS [Suspect]
     Indication: DIABETES MELLITUS NON-INSULIN-DEPENDENT
     Dosage: 32 IU/DAY SC
     Route: 058
     Dates: start: 20051201
  4. LANTUS [Suspect]
     Indication: DIABETES MELLITUS NON-INSULIN-DEPENDENT
     Dosage: 42 IU/DAY SC
     Route: 058
     Dates: start: 20051216
  5. LANTUS [Suspect]
     Indication: DIABETES MELLITUS NON-INSULIN-DEPENDENT
     Dosage: 48 IU
     Dates: end: 20051226
  6. OPTICLIK [Suspect]
     Indication: DIABETES MELLITUS NON-INSULIN-DEPENDENT
     Dates: start: 20051213
  7. PREDNISONE [Suspect]
     Indication: DIPLOPIA
     Dosage: 60 MG/DAY PO
     Route: 048
     Dates: start: 20051201
  8. ASPIRIN [Concomitant]
  9. ATORVASTATIN CALCIUM (LIPITOR) [Concomitant]
  10. ADENOSINE (TRICOR /00090101/) [Concomitant]
  11. METFORMIN HYDROCHLORIDE [Concomitant]
  12. METOPROLOL SUCCINATE (TOPROL) [Concomitant]
  13. CHEMOTHERAPY [Concomitant]
  14. ERGOCALCIFEROL, ASCORBIC ACID, FOLIC ACID, THIAMINE HYDROCHLORIDE, RET [Concomitant]

REACTIONS (2)
  - BLOOD GLUCOSE INCREASED [None]
  - HYPERGLYCAEMIA [None]
